FAERS Safety Report 5857406-3 (Version None)
Quarter: 2008Q3

REPORT INFORMATION
  Report Type: 
  Country: None (occurrence: None)
  Receive Date: 20080825
  Receipt Date: 20080825
  Transmission Date: 20090109
  Serious: Yes (Other)
  Sender: FDA-Public Use
  Company Number: None

PATIENT
  Age: 49 Year
  Sex: Female
  Weight: 103.4201 kg

DRUGS (2)
  1. BIAXIN [Suspect]
     Indication: BACTERIAL INFECTION
     Dosage: 1/2 PILL  2 TIMES DAILY  PO
     Route: 048
     Dates: start: 20080818, end: 20080821
  2. CLARITHROMYCIN [Suspect]

REACTIONS (4)
  - FEELING ABNORMAL [None]
  - HEART RATE IRREGULAR [None]
  - PALPITATIONS [None]
  - RESPIRATORY RATE DECREASED [None]
